FAERS Safety Report 8600569-7 (Version None)
Quarter: 2012Q3

REPORT INFORMATION
  Report Type: 
  Country: None (occurrence: None)
  Receive Date: 20120817
  Receipt Date: 20120625
  Transmission Date: 20120928
  Serious: No
  Sender: FDA-Public Use
  Company Number: US-MYLANLABS-2012S1009181

PATIENT
  Sex: Female

DRUGS (5)
  1. CLARITIN /00917501/ [Concomitant]
  2. LISINOPRIL AND HYDROCHLOROTHIAZIDE [Suspect]
     Indication: BLOOD PRESSURE INCREASED
     Dates: start: 20120101, end: 20120301
  3. LISINOPRIL AND HYDROCHLOROTHIAZIDE [Suspect]
     Dates: start: 20120101, end: 20120301
  4. M.V.I. [Concomitant]
  5. ASCORBIC ACID [Concomitant]

REACTIONS (6)
  - SCAR [None]
  - BLOOD PRESSURE FLUCTUATION [None]
  - BLOOD PRESSURE INCREASED [None]
  - URTICARIA [None]
  - DRUG INEFFECTIVE [None]
  - DYSPNOEA [None]
